FAERS Safety Report 4312079-6 (Version None)
Quarter: 2004Q1

REPORT INFORMATION
  Report Type: 
  Country: None (occurrence: None)
  Receive Date: 20040303
  Receipt Date: 20040218
  Transmission Date: 20041129
  Serious: No
  Sender: FDA-Public Use
  Company Number: 2004-BP-01245NB

PATIENT
  Age: 60 Year
  Sex: Male

DRUGS (2)
  1. MICARDIS [Suspect]
     Indication: HYPERTENSION
     Dosage: 20 MG (20 MG) PO
     Route: 048
     Dates: start: 20031201
  2. OMEPRAL (OMEPRAZOLE) (TA) [Suspect]
     Dosage: PO
     Route: 048
     Dates: start: 20031201

REACTIONS (1)
  - RHABDOMYOLYSIS [None]
